FAERS Safety Report 5156229-0 (Version None)
Quarter: 2006Q4

REPORT INFORMATION
  Report Type: 
  Country: None (occurrence: None)
  Receive Date: 20061114
  Receipt Date: 20061108
  Transmission Date: 20070319
  Serious: Yes (Other)
  Sender: FDA-Public Use
  Company Number: 2006-05-1021

PATIENT
  Age: 46 Year
  Sex: Female
  Weight: 63.5036 kg

DRUGS (5)
  1. PEG-INTRON [Suspect]
     Indication: HEPATITIS C
     Dosage: 180 MCG; QW; SC
     Route: 058
     Dates: start: 20060424, end: 20061016
  2. REBETOL [Suspect]
     Indication: HEPATITIS C
     Dosage: 400 MG; BID; PO
     Route: 048
     Dates: start: 20060424, end: 20061016
  3. LORET PLUS [Concomitant]
  4. PREMARIN [Concomitant]
  5. SOMA [Concomitant]

REACTIONS (35)
  - ALOPECIA [None]
  - ANGER [None]
  - CATARACT [None]
  - CHROMATURIA [None]
  - DRUG DOSE OMISSION [None]
  - DRY MOUTH [None]
  - DYSGEUSIA [None]
  - DYSURIA [None]
  - EMOTIONAL DISTRESS [None]
  - EYE IRRITATION [None]
  - FATIGUE [None]
  - FEELING COLD [None]
  - FORMICATION [None]
  - HAIR DISORDER [None]
  - HYPERAESTHESIA [None]
  - HYPERHIDROSIS [None]
  - INAPPROPRIATE SCHEDULE OF DRUG ADMINISTRATION [None]
  - INFLUENZA [None]
  - INSOMNIA [None]
  - MADAROSIS [None]
  - MALAISE [None]
  - MICTURITION URGENCY [None]
  - PAIN [None]
  - PAIN IN EXTREMITY [None]
  - PAROSMIA [None]
  - PHOTOPHOBIA [None]
  - PRURITUS [None]
  - REFUSAL OF TREATMENT BY PATIENT [None]
  - SKIN INFECTION [None]
  - SOMNOLENCE [None]
  - STOMATITIS [None]
  - TOOTH FRACTURE [None]
  - TOOTHACHE [None]
  - VISION BLURRED [None]
  - WEIGHT DECREASED [None]
